FAERS Safety Report 6016349-5 (Version None)
Quarter: 2008Q4

REPORT INFORMATION
  Report Type: 
  Country: None (occurrence: None)
  Receive Date: 20081222
  Receipt Date: 20081217
  Transmission Date: 20090506
  Serious: Yes (Hospitalization)
  Sender: FDA-Public Use
  Company Number: MX-JNJFOC-20081106116

PATIENT
  Sex: Male
  Weight: 60 kg

DRUGS (11)
  1. TMC114 [Suspect]
     Route: 048
  2. TMC114 [Suspect]
     Indication: HIV INFECTION
     Route: 048
  3. NORVIR [Suspect]
     Indication: HIV INFECTION
     Route: 048
  4. TRUVADA [Concomitant]
     Indication: HIV INFECTION
     Route: 048
  5. GLUCOSAMINE SULPHATE [Concomitant]
     Indication: MEDICAL DIET
     Route: 048
  6. ALUMINUM HYDROXIDE GEL [Concomitant]
     Indication: DYSPEPSIA
     Route: 048
  7. PHARMATON [Concomitant]
     Route: 048
  8. CLOROIMIPRAMINE [Concomitant]
     Route: 048
  9. ASTEMIZOLE [Concomitant]
     Route: 048
  10. HYDROCORTISONE [Concomitant]
  11. CHLORPHENTERMINE 65MG TAB [Concomitant]

REACTIONS (1)
  - SYPHILIS [None]
